FAERS Safety Report 13844053 (Version 3)
Quarter: 2017Q3

REPORT INFORMATION
  Report Type: Spontaneous
  Country: US (occurrence: US)
  Receive Date: 20170808
  Receipt Date: 20170929
  Transmission Date: 20171127
  Serious: No
  Sender: FDA-Public Use
  Company Number: US-PFIZER INC-2017337045

PATIENT
  Age: 55 Year
  Sex: Female

DRUGS (1)
  1. XELJANZ XR [Suspect]
     Active Substance: TOFACITINIB CITRATE
     Indication: RHEUMATOID ARTHRITIS
     Dosage: 11 MG, ONCE DAILY
     Route: 048
     Dates: start: 201706

REACTIONS (10)
  - Rhinorrhoea [Unknown]
  - Dry mouth [Unknown]
  - Fatigue [Unknown]
  - Nasal congestion [Unknown]
  - Ear pain [Unknown]
  - Drug ineffective [Unknown]
  - Chest pain [Unknown]
  - Condition aggravated [Unknown]
  - Oropharyngeal pain [Unknown]
  - Headache [Unknown]
